FAERS Safety Report 4354980-3 (Version None)
Quarter: 2004Q2

REPORT INFORMATION
  Report Type: 
  Country: None (occurrence: None)
  Receive Date: 20040504
  Receipt Date: 20040422
  Transmission Date: 20050107
  Serious: Yes (Hospitalization, Other)
  Sender: FDA-Public Use
  Company Number: HQWYE389215JAN04

PATIENT
  Age: 3 Year
  Sex: Female

DRUGS (1)
  1. CHILDREN'S ADVIL [Suspect]
     Indication: VARICELLA
     Dosage: ORAL
     Route: 048
     Dates: start: 20030715, end: 20030802

REACTIONS (8)
  - CONDITION AGGRAVATED [None]
  - HYPERTHERMIA [None]
  - NORMOCHROMIC NORMOCYTIC ANAEMIA [None]
  - PYELONEPHRITIS [None]
  - STAPHYLOCOCCAL INFECTION [None]
  - THROMBOCYTHAEMIA [None]
  - VARICELLA [None]
  - XANTHOGRANULOMA [None]
